FAERS Safety Report 23596940 (Version 1)
Quarter: 2024Q1

REPORT INFORMATION
  Report Type: Report from Study
  Country: US (occurrence: None)
  Receive Date: 20240305
  Receipt Date: 20240305
  Transmission Date: 20240410
  Serious: Yes (Other)
  Sender: FDA-Public Use
  Company Number: 2024A052674

PATIENT
  Sex: Female

DRUGS (1)
  1. TAGRISSO [Suspect]
     Active Substance: OSIMERTINIB
     Indication: Thyroid cancer
     Route: 048
     Dates: start: 202112

REACTIONS (3)
  - Axillary mass [Unknown]
  - Malignant neoplasm progression [Unknown]
  - Drug ineffective [Unknown]
